FAERS Safety Report 7846745-2 (Version None)
Quarter: 2011Q4

REPORT INFORMATION
  Report Type: 
  Country: None (occurrence: None)
  Receive Date: 20111025
  Receipt Date: 20111019
  Transmission Date: 20120403
  Serious: Yes (Other)
  Sender: FDA-Public Use
  Company Number: PHHY2011FR89876

PATIENT
  Sex: Male
  Weight: 77 kg

DRUGS (2)
  1. GLEEVEC [Suspect]
     Indication: CHRONIC MYELOID LEUKAEMIA
     Dosage: 300 MG
     Route: 048
     Dates: start: 20020401
  2. PREVISCAN [Concomitant]
     Dosage: UNK
     Dates: start: 19960101

REACTIONS (1)
  - CHRONIC LYMPHOCYTIC LEUKAEMIA [None]
